FAERS Safety Report 16613675 (Version 3)
Quarter: 2019Q4

REPORT INFORMATION
  Report Type: Spontaneous
  Country: JP (occurrence: JP)
  Receive Date: 20190723
  Receipt Date: 20191126
  Transmission Date: 20200122
  Serious: Yes (Hospitalization, Other)
  Sender: FDA-Public Use
  Company Number: JP-SA-2019SA197052

PATIENT
  Age: 63 Year
  Sex: Male
  Weight: 52 kg

DRUGS (7)
  1. ELPLAT [Suspect]
     Active Substance: OXALIPLATIN
     Indication: RECTAL CANCER
     Dosage: UNK UNK
     Route: 041
     Dates: start: 20140606
  2. LEVOFOLINATE CALCIUM [Suspect]
     Active Substance: LEVOLEUCOVORIN CALCIUM
     Indication: RECTAL CANCER
     Dosage: UNK UNK
     Route: 041
     Dates: start: 20140606
  3. FLUOROURACIL. [Concomitant]
     Active Substance: FLUOROURACIL
     Dosage: UNK
     Dates: start: 20140606, end: 20140930
  4. BEVACIZUMAB. [Concomitant]
     Active Substance: BEVACIZUMAB
     Dosage: UNK
     Dates: start: 20140606, end: 20140729
  5. VOLTAREN [Concomitant]
     Active Substance: DICLOFENAC SODIUM
     Dosage: UNK
     Dates: start: 20140805
  6. MUCOSTA [Concomitant]
     Active Substance: REBAMIPIDE
     Dosage: UNK
     Dates: start: 20140805
  7. GASTER [FAMOTIDINE] [Concomitant]
     Dosage: UNK
     Dates: start: 20140805

REACTIONS (5)
  - Duodenal ulcer perforation [Recovered/Resolved]
  - Postoperative wound complication [Unknown]
  - Fistula of small intestine [Not Recovered/Not Resolved]
  - Ileus [Unknown]
  - Wound secretion [Unknown]

NARRATIVE: CASE EVENT DATE: 20140909
